FAERS Safety Report 25832378 (Version 2)
Quarter: 2025Q3

REPORT INFORMATION
  Report Type: Spontaneous
  Country: EU (occurrence: EU)
  Receive Date: 20250922
  Receipt Date: 20250923
  Transmission Date: 20251020
  Serious: Yes (Hospitalization, Other)
  Sender: SANOFI AVENTIS
  Company Number: None

PATIENT
  Age: 65 Year
  Sex: Male

DRUGS (19)
  1. SILODOSIN [Suspect]
     Active Substance: SILODOSIN
     Indication: Product used for unknown indication
     Route: 048
  2. ARIPIPRAZOLE [Suspect]
     Active Substance: ARIPIPRAZOLE
     Dosage: 10 MG, QD
     Route: 048
  3. BISOPROLOL FUMARATE [Suspect]
     Active Substance: BISOPROLOL FUMARATE
     Route: 048
  4. DIAZEPAM [Suspect]
     Active Substance: DIAZEPAM
     Dosage: 5 MG, QD
     Route: 048
  5. FORMOTEROL FUMARATE [Suspect]
     Active Substance: FORMOTEROL FUMARATE
     Route: 055
  6. FUROSEMIDE [Suspect]
     Active Substance: FUROSEMIDE
     Dosage: 20 MG, QD
     Route: 048
     Dates: end: 20160715
  7. PHENOBARBITAL [Suspect]
     Active Substance: PHENOBARBITAL
     Dosage: 150 MG, QD
     Route: 048
  8. KARDEGIC [Suspect]
     Active Substance: ASPIRIN DL-LYSINE
  9. AMITRIPTYLINE HYDROCHLORIDE [Suspect]
     Active Substance: AMITRIPTYLINE HYDROCHLORIDE
     Dosage: 75 MG, QD
     Route: 048
  10. PANTOPRAZOLE [Suspect]
     Active Substance: PANTOPRAZOLE
     Dosage: 40 MG, QD
     Route: 048
  11. CLOPIDOGREL BESILATE [Suspect]
     Active Substance: CLOPIDOGREL BESILATE
  12. CYAMEMAZINE [Suspect]
     Active Substance: CYAMEMAZINE
     Dosage: 1 DF, QD
     Route: 048
  13. TRAMADOL HYDROCHLORIDE [Suspect]
     Active Substance: TRAMADOL HYDROCHLORIDE
     Dosage: 400 MG, QD (LP 20 MORNING AND EVENING)
     Route: 048
  14. TRAMADOL HYDROCHLORIDE [Suspect]
     Active Substance: TRAMADOL HYDROCHLORIDE
     Dosage: 150 MG, QD
     Route: 048
  15. NITROGLYCERIN [Suspect]
     Active Substance: NITROGLYCERIN
     Dosage: 1 DF, QD
     Route: 003
  16. ESTAZOLAM [Suspect]
     Active Substance: ESTAZOLAM
     Dosage: 2 MG, QD
     Route: 048
  17. TRIMEPRAZINE [Suspect]
     Active Substance: TRIMEPRAZINE
     Dosage: 3 DF, QD
  18. TAHOR [Suspect]
     Active Substance: ATORVASTATIN CALCIUM
     Dosage: 10 MG, QD
     Route: 048
  19. TIOTROPIUM BROMIDE MONOHYDRATE [Suspect]
     Active Substance: TIOTROPIUM BROMIDE MONOHYDRATE
     Route: 055

REACTIONS (2)
  - Inappropriate antidiuretic hormone secretion [Not Recovered/Not Resolved]
  - Hyponatraemia [Not Recovered/Not Resolved]

NARRATIVE: CASE EVENT DATE: 20160714
